FAERS Safety Report 7349368-7 (Version None)
Quarter: 2011Q1

REPORT INFORMATION
  Report Type: 
  Country: None (occurrence: None)
  Receive Date: 20110314
  Receipt Date: 20110308
  Transmission Date: 20110831
  Serious: Yes (Other)
  Sender: FDA-Public Use
  Company Number: US-SANOFI-AVENTIS-2011SA006944

PATIENT
  Age: 76 Year
  Sex: Female
  Weight: 77.11 kg

DRUGS (11)
  1. LANTUS [Suspect]
     Indication: TYPE 2 DIABETES MELLITUS
     Dosage: DOSE:20 UNIT(S)
     Route: 058
  2. CALCIUM [Concomitant]
  3. OMEPRAZOLE [Concomitant]
  4. OPTICLICK [Suspect]
     Indication: TYPE 2 DIABETES MELLITUS
  5. LEVOTHYROXINE [Concomitant]
     Indication: THYROID DISORDER
  6. BENICAR [Concomitant]
     Indication: BLOOD PRESSURE
  7. CADUET COMBINATION [Concomitant]
     Dosage: 10-20 MG
  8. FISH OIL [Concomitant]
  9. TYLENOL [Concomitant]
  10. FUROSEMIDE [Concomitant]
  11. HYDROCHLOROTHIAZIDE [Concomitant]
     Dosage: 25 MG IN AM AND 12.5 MG IN PM

REACTIONS (1)
  - SPINAL FUSION SURGERY [None]
